FAERS Safety Report 5219081-0 (Version None)
Quarter: 2007Q1

REPORT INFORMATION
  Report Type: 
  Country: None (occurrence: None)
  Receive Date: 20070124
  Receipt Date: 20070124
  Transmission Date: 20070707
  Serious: Yes (Life-Threatening, Hospitalization, Disabling)
  Sender: FDA-Public Use
  Company Number: None

PATIENT
  Age: 42 Year
  Sex: Male
  Weight: 99.7913 kg

DRUGS (1)
  1. ADVIL [Suspect]
     Indication: HEADACHE
     Dosage: 400MG T.I.D. ORAL
     Route: 048
     Dates: start: 20061030, end: 20061105

REACTIONS (14)
  - APHASIA [None]
  - ASTHENIA [None]
  - BRAIN DAMAGE [None]
  - CARDIO-RESPIRATORY ARREST [None]
  - COMA [None]
  - DIABETES MELLITUS [None]
  - GASTRIC ULCER HAEMORRHAGE [None]
  - HEPATOCELLULAR DAMAGE [None]
  - MULTI-ORGAN FAILURE [None]
  - PERITONITIS [None]
  - RENAL DISORDER [None]
  - RENAL FAILURE ACUTE [None]
  - SEPTIC SHOCK [None]
  - TREMOR [None]
